FAERS Safety Report 14144353 (Version 2)
Quarter: 2017Q4

REPORT INFORMATION
  Report Type: Spontaneous
  Country: US (occurrence: US)
  Receive Date: 20171031
  Receipt Date: 20171124
  Transmission Date: 20180321
  Serious: No
  Sender: FDA-Public Use
  Company Number: US-PFIZER INC-2017465483

PATIENT
  Sex: Female

DRUGS (3)
  1. ZINC CHLORIDE [Suspect]
     Active Substance: ZINC CHLORIDE
     Indication: PAIN
     Dosage: UNK
  2. CALAMINE LOTION [Suspect]
     Active Substance: CALAMINE LOTION
     Indication: PAIN
     Dosage: UNK
  3. COMPAZINE [Suspect]
     Active Substance: PROCHLORPERAZINE MALEATE
     Indication: PAIN
     Dosage: UNK

REACTIONS (3)
  - Drug hypersensitivity [Unknown]
  - Intentional product misuse [Unknown]
  - Rash [Recovered/Resolved]
